FAERS Safety Report 8934737 (Version 1)
Quarter: 2012Q4

REPORT INFORMATION
  Report Type: 
  Country: US (occurrence: US)
  Receive Date: 20121129
  Receipt Date: 20121129
  Transmission Date: 20130627
  Serious: Yes (Hospitalization)
  Sender: FDA-Public Use
  Company Number: CHPA2012US023037

PATIENT
  Age: 67 Year
  Sex: Male

DRUGS (1)
  1. NUPERCAINAL HEMORRHOIDAL/ANES OINTMENT [Suspect]
     Indication: PRURITUS
     Dosage: Unk, as needed
     Route: 048
     Dates: end: 2012

REACTIONS (4)
  - Cellulitis [Unknown]
  - Burning sensation [Unknown]
  - Disease recurrence [Unknown]
  - Expired drug administered [Unknown]
